FAERS Safety Report 8764239 (Version 2)
Quarter: 2012Q4

REPORT INFORMATION
  Report Type: 
  Country: RU (occurrence: RU)
  Receive Date: 20120831
  Receipt Date: 20120924
  Transmission Date: 20130627
  Serious: Yes (Life-Threatening, Hospitalization, Other)
  Sender: FDA-Public Use
  Company Number: RU-RANBAXY-2012RR-59486

PATIENT
  Age: 17 Year
  Sex: Female
  Weight: 50 kg

DRUGS (1)
  1. PARACETAMOL [Suspect]
     Indication: PRODUCT USED FOR UNKNOWN INDICATION
     Dosage: 40 x 500mg tablets
     Route: 048
     Dates: start: 20101115, end: 20101115

REACTIONS (11)
  - Toxicity to various agents [Recovering/Resolving]
  - Suicide attempt [Unknown]
  - Acute hepatic failure [Recovering/Resolving]
  - Nephropathy [Recovering/Resolving]
  - Toxic encephalopathy [Recovering/Resolving]
  - Coagulopathy [Recovered/Resolved]
  - Overdose [Recovered/Resolved]
  - Yellow skin [None]
  - Mucosal discolouration [None]
  - Hepatomegaly [None]
  - Hepatic necrosis [None]
